FAERS Safety Report 7475767-9 (Version None)
Quarter: 2011Q2

REPORT INFORMATION
  Report Type: 
  Country: None (occurrence: None)
  Receive Date: 20110512
  Receipt Date: 20110131
  Transmission Date: 20111010
  Serious: Yes (Other)
  Sender: FDA-Public Use
  Company Number: PHHY2011FI07507

PATIENT
  Sex: Male

DRUGS (4)
  1. CLOZAPINE [Suspect]
     Dosage: UNK
     Dates: start: 20100901
  2. CLOZAPINE [Suspect]
     Indication: SCHIZOAFFECTIVE DISORDER
     Dosage: UNK
     Dates: start: 20090101
  3. CLOZAPINE [Suspect]
     Dosage: 450 MG, QD
  4. CLOZAPINE [Suspect]
     Dosage: 350 MG, QD
     Dates: start: 20090101

REACTIONS (7)
  - ACUTE LEUKAEMIA [None]
  - LEUKOCYTOSIS [None]
  - INFLUENZA [None]
  - BODY TEMPERATURE INCREASED [None]
  - THROMBOCYTOPENIA [None]
  - SINUSITIS [None]
  - DYSPNOEA [None]
